FAERS Safety Report 12802273 (Version 1)
Quarter: 2016Q4

REPORT INFORMATION
  Report Type: Spontaneous
  Country: US (occurrence: US)
  Receive Date: 20161003
  Receipt Date: 20161003
  Transmission Date: 20170207
  Serious: No
  Sender: FDA-Public Use
  Company Number: US-JAZZ-2016-US-012440

PATIENT
  Sex: Male

DRUGS (36)
  1. XYREM [Suspect]
     Active Substance: SODIUM OXYBATE
     Indication: FIBROMYALGIA
     Dosage: 3 G, BID
     Route: 048
     Dates: start: 200808, end: 200808
  2. IMODIUM A-D [Concomitant]
     Active Substance: LOPERAMIDE HYDROCHLORIDE
  3. NIACIN. [Concomitant]
     Active Substance: NIACIN
  4. POTASSIUM [Concomitant]
     Active Substance: POTASSIUM
  5. CARVEDILOL. [Concomitant]
     Active Substance: CARVEDILOL
  6. SINEMET [Concomitant]
     Active Substance: CARBIDOPA\LEVODOPA
  7. LOMOTIL [Suspect]
     Active Substance: ATROPINE SULFATE\DIPHENOXYLATE HYDROCHLORIDE
     Indication: PRODUCT USED FOR UNKNOWN INDICATION
     Dosage: UNK
  8. CLOPIDOGREL [Concomitant]
     Active Substance: CLOPIDOGREL BISULFATE
  9. CRESTOR [Concomitant]
     Active Substance: ROSUVASTATIN CALCIUM
  10. AMBIEN CR [Concomitant]
     Active Substance: ZOLPIDEM TARTRATE
  11. NAMENDA [Concomitant]
     Active Substance: MEMANTINE HYDROCHLORIDE
  12. XYREM [Suspect]
     Active Substance: SODIUM OXYBATE
     Dosage: DOSE ADJUSTMENTS
     Route: 048
     Dates: start: 200808, end: 201305
  13. VITAMIN D3 [Concomitant]
     Active Substance: CHOLECALCIFEROL
  14. HCTZ [Concomitant]
     Active Substance: HYDROCHLOROTHIAZIDE
  15. DIPHENOXYLATE/ATROPINE [Concomitant]
     Active Substance: ATROPINE\DIPHENOXYLATE
  16. HYDROCODONE/ACETAMINOPHEN [Concomitant]
     Active Substance: ACETAMINOPHEN\HYDROCODONE
  17. PANTOPRAZOLE SODIUM. [Concomitant]
     Active Substance: PANTOPRAZOLE SODIUM
  18. LYRICA [Concomitant]
     Active Substance: PREGABALIN
  19. SEROQUEL [Concomitant]
     Active Substance: QUETIAPINE FUMARATE
  20. NITROSTAT [Concomitant]
     Active Substance: NITROGLYCERIN
  21. LISINOPRIL. [Concomitant]
     Active Substance: LISINOPRIL
  22. CLONAZEPAM. [Concomitant]
     Active Substance: CLONAZEPAM
  23. ZALEPLON. [Concomitant]
     Active Substance: ZALEPLON
  24. OMEGA 3 FISH OIL [Concomitant]
     Active Substance: FISH OIL\OMEGA-3 FATTY ACIDS
  25. IMDUR [Concomitant]
     Active Substance: ISOSORBIDE MONONITRATE
  26. DOXEPIN [Concomitant]
     Active Substance: DOXEPIN
  27. CARISOPRODOL. [Concomitant]
     Active Substance: CARISOPRODOL
  28. LEVOTHYROXINE SODIUM. [Concomitant]
     Active Substance: LEVOTHYROXINE SODIUM
  29. XYREM [Suspect]
     Active Substance: SODIUM OXYBATE
     Dosage: 4.5 G, BID
     Route: 048
     Dates: start: 201305
  30. CYANOCOBALAMIN. [Concomitant]
     Active Substance: CYANOCOBALAMIN
  31. TRIHEXYPHENIDYL [Concomitant]
     Active Substance: TRIHEXYPHENIDYL
  32. DONEPEZIL HCL ODT [Concomitant]
  33. CYMBALTA [Concomitant]
     Active Substance: DULOXETINE HYDROCHLORIDE
  34. TRAZODONE HYDROCHLORIDE. [Concomitant]
     Active Substance: TRAZODONE HYDROCHLORIDE
  35. MIRTAZAPINE. [Concomitant]
     Active Substance: MIRTAZAPINE
  36. HYDROCORTISONE. [Concomitant]
     Active Substance: HYDROCORTISONE

REACTIONS (1)
  - Constipation [Not Recovered/Not Resolved]
